FAERS Safety Report 5031652-3 (Version None)
Quarter: 2006Q2

REPORT INFORMATION
  Report Type: 
  Country: None (occurrence: None)
  Receive Date: 20060616
  Receipt Date: 20060607
  Transmission Date: 20061013
  Serious: Yes (Other)
  Sender: FDA-Public Use
  Company Number: 430130K05USA

PATIENT
  Age: 33 Year
  Sex: Female
  Weight: 104.3 kg

DRUGS (1)
  1. NOVANTRONE [Suspect]
     Indication: MULTIPLE SCLEROSIS
     Dosage: 12 MG/M2, NOT REPORTED, INTRAVENOUS (NOT OTHERWISE SPECIFIED)
     Route: 042
     Dates: start: 20031217, end: 20050427

REACTIONS (2)
  - EJECTION FRACTION DECREASED [None]
  - WHITE BLOOD CELL COUNT DECREASED [None]
